FAERS Safety Report 9177288 (Version 1)
Quarter: 2013Q1

REPORT INFORMATION
  Report Type: Spontaneous
  Country: US (occurrence: None)
  Receive Date: 20130320
  Receipt Date: 20130320
  Transmission Date: 20140127
  Serious: Yes (Hospitalization)
  Sender: FDA-Public Use
  Company Number: None

PATIENT
  Age: 64 Year
  Sex: Male
  Weight: 82 kg

DRUGS (11)
  1. VALPORIC ACID [Suspect]
     Indication: CONVULSION
     Route: 048
     Dates: start: 20130228, end: 20130307
  2. LACTULOSE [Concomitant]
  3. LOXAPRO [Concomitant]
  4. METOPROLOL TARTRATE [Concomitant]
  5. MULTIVITAMIN [Concomitant]
  6. OMEPRAZOLE [Concomitant]
  7. RIFAXIMIN [Concomitant]
  8. TRIMACINOLONE CREAM [Concomitant]
  9. EPOETIN ALFA [Concomitant]
  10. OXYCODONE [Concomitant]
  11. TRAZODONE [Concomitant]

REACTIONS (3)
  - Toxicity to various agents [None]
  - Overdose [None]
  - Drug dispensing error [None]
